FAERS Safety Report 7767250-8 (Version None)
Quarter: 2011Q3

REPORT INFORMATION
  Report Type: 
  Country: None (occurrence: None)
  Receive Date: 20110922
  Receipt Date: 20110318
  Transmission Date: 20111222
  Serious: No
  Sender: FDA-Public Use
  Company Number: US-ASTRAZENECA-2007UW05364

PATIENT
  Age: 329 Month
  Sex: Female
  Weight: 79.4 kg

DRUGS (6)
  1. CYMBALTA [Concomitant]
     Dates: start: 20060130, end: 20060413
  2. CLONAZEPAM [Concomitant]
     Dates: start: 20060826, end: 20070412
  3. WELLBUTRIN [Concomitant]
     Dates: start: 20060901
  4. SEROQUEL [Suspect]
     Indication: SLEEP DISORDER
     Dosage: 25-100 MG
     Route: 048
     Dates: start: 20030520, end: 20060201
  5. ALPRAZOLAM [Concomitant]
     Dates: start: 20060606, end: 20060725
  6. TRILEPTAL [Concomitant]
     Dates: start: 20060901

REACTIONS (2)
  - OBESITY [None]
  - TYPE 2 DIABETES MELLITUS [None]
